FAERS Safety Report 4667249-4 (Version None)
Quarter: 2005Q2

REPORT INFORMATION
  Report Type: 
  Country: None (occurrence: None)
  Receive Date: 20050421
  Receipt Date: 20040915
  Transmission Date: 20051028
  Serious: Yes (Hospitalization)
  Sender: FDA-Public Use
  Company Number: 800129

PATIENT
  Age: 51 Year
  Sex: Female
  Weight: 99.7913 kg

DRUGS (10)
  1. EXTRANEAL [Suspect]
     Indication: PERITONEAL DIALYSIS
     Dosage: 2.5 L; QD; INTRAPERITONEAL
     Route: 033
     Dates: start: 20040501, end: 20040707
  2. DIANEAL PD-2 W/ DEXTROSE 1.5% [Suspect]
     Indication: PERITONEAL DIALYSIS
     Dosage: 10 L; QD; INTRAPERITONEAL
     Route: 033
     Dates: start: 20000801
  3. POTASSIUM CHLORIDE [Concomitant]
  4. SYNTHROID [Concomitant]
  5. ZOCOR [Concomitant]
  6. HECTOROL [Concomitant]
  7. VITAMINS [Concomitant]
  8. IRON [Concomitant]
  9. OMEPRAZOLE [Concomitant]
  10. RENAGEL [Concomitant]

REACTIONS (2)
  - BACTERIAL INFECTION [None]
  - PERITONITIS BACTERIAL [None]
